FAERS Safety Report 18933216 (Version 1)
Quarter: 2021Q1

REPORT INFORMATION
  Report Type: Spontaneous
  Country: US (occurrence: US)
  Receive Date: 20210223
  Receipt Date: 20210223
  Transmission Date: 20210420
  Serious: Yes (Hospitalization)
  Sender: FDA-Public Use
  Company Number: None

PATIENT
  Age: 61 Year
  Sex: Female

DRUGS (1)
  1. HUMIRA [Suspect]
     Active Substance: ADALIMUMAB
     Indication: DERMATITIS ATOPIC
     Route: 058
     Dates: start: 20200602

REACTIONS (3)
  - Haematochezia [None]
  - Treatment failure [None]
  - Dehydration [None]

NARRATIVE: CASE EVENT DATE: 20210215
